FAERS Safety Report 10188053 (Version 1)
Quarter: 2014Q2

REPORT INFORMATION
  Report Type: Spontaneous
  Country: US (occurrence: US)
  Receive Date: 20140522
  Receipt Date: 20140522
  Transmission Date: 20141212
  Serious: No
  Sender: FDA-Public Use
  Company Number: US-SA-2013SA106196

PATIENT
  Age: 69 Year
  Sex: Female

DRUGS (2)
  1. LANTUS SOLOSTAR [Suspect]
     Dosage: DOSE:70 UNIT(S)
     Route: 051
  2. SOLOSTAR [Concomitant]

REACTIONS (6)
  - Fatigue [Unknown]
  - Confusional state [Unknown]
  - Somnolence [Not Recovered/Not Resolved]
  - Arthropathy [Unknown]
  - Blood glucose abnormal [Unknown]
  - Accidental overdose [Unknown]
